FAERS Safety Report 4531447-0 (Version None)
Quarter: 2004Q4

REPORT INFORMATION
  Report Type: 
  Country: None (occurrence: None)
  Receive Date: 20041216
  Receipt Date: 20041203
  Transmission Date: 20050328
  Serious: Yes (Death, Hospitalization, Other)
  Sender: FDA-Public Use
  Company Number: 2004EN000085

PATIENT
  Age: 16 Year
  Sex: Female

DRUGS (12)
  1. ABELCET [Suspect]
     Indication: FUNGAL INFECTION
     Dosage: 5 MG/KG;QD;IV
     Route: 042
  2. CIPROFLOXACIN [Suspect]
     Indication: FUNGAL INFECTION
  3. CASPOFUNGIN [Suspect]
     Indication: PNEUMONIA FUNGAL
     Dosage: 0.7 MG/KG,QW;IV
     Route: 042
  4. AMPHOTERICIN B [Suspect]
     Indication: FUNGAL INFECTION
     Dosage: IV
     Route: 042
  5. AMPHOTERICIN B [Suspect]
     Indication: FUNGAL INFECTION
     Dosage: IV
     Route: 042
  6. IMMUNE GLOBULIN INTRAVENOUS (HUMAN) [Concomitant]
  7. CASPOFUNGIN [Concomitant]
  8. TRIMETHOPRIN [Concomitant]
  9. SULFAMETHOXAZOLE [Concomitant]
  10. MEROPENEM [Concomitant]
  11. VANCOMYCIN [Concomitant]
  12. BLOOD AND RELATED PRODUCTS [Concomitant]

REACTIONS (16)
  - ANAEMIA [None]
  - CANDIDIASIS [None]
  - CONDITION AGGRAVATED [None]
  - FUNGAEMIA [None]
  - GASTROINTESTINAL HAEMORRHAGE [None]
  - HAEMATEMESIS [None]
  - HYPERBILIRUBINAEMIA [None]
  - MUCOSAL HAEMORRHAGE [None]
  - PNEUMONIA FUNGAL [None]
  - PORTAL HYPERTENSION [None]
  - PULMONARY MASS [None]
  - RENAL IMPAIRMENT [None]
  - RESPIRATORY DISTRESS [None]
  - THROMBOCYTOPENIA [None]
  - TRACHEAL ULCER [None]
  - VARICES OESOPHAGEAL [None]
